FAERS Safety Report 6580829-4 (Version None)
Quarter: 2010Q1

REPORT INFORMATION
  Report Type: 
  Country: None (occurrence: None)
  Receive Date: 20100215
  Receipt Date: 20100204
  Transmission Date: 20100710
  Serious: No
  Sender: FDA-Public Use
  Company Number: GB-BIOGENIDEC-2009BI032448

PATIENT
  Age: 47 Year
  Sex: Female

DRUGS (27)
  1. AVONEX [Suspect]
     Indication: MULTIPLE SCLEROSIS
  2. AMITRIPTYLINE HCL [Concomitant]
  3. ADIZEM [Concomitant]
     Dates: start: 20091222
  4. ALBUTEROL [Concomitant]
     Dates: start: 20090901
  5. SERATIDE 125 EVOHALOR [Concomitant]
  6. SERATIDE 125 EVOHALOR [Concomitant]
  7. CALICHEW-D3 FORTE [Concomitant]
     Dates: start: 20091104
  8. CITALOPRAM [Concomitant]
     Dates: start: 20090811
  9. OMEPRAZOL [Concomitant]
  10. MOVICOL [Concomitant]
  11. CLONAZEPAM [Concomitant]
  12. CO-CODAMOL [Concomitant]
     Dates: start: 20090811
  13. CO-CODAMOL [Concomitant]
     Dates: start: 20090811
  14. MAXALT MELT [Concomitant]
     Indication: MIGRAINE
     Dates: start: 20090811
  15. SENNA [Concomitant]
  16. PARACETAMOL [Concomitant]
     Dates: start: 20100120
  17. ACYCLOVIR [Concomitant]
  18. TETRALYSAL [Concomitant]
  19. TERBINAFINE [Concomitant]
  20. LYMECYCLINE [Concomitant]
  21. ORLISTAT [Concomitant]
     Dates: start: 20090811
  22. ORLISTAT [Concomitant]
     Dates: start: 20090811
  23. ORLISTAT [Concomitant]
  24. AMANTADINE HCL [Concomitant]
     Dates: start: 20090814
  25. NIFEDIPINE [Concomitant]
  26. CO-AMILOFRUSE [Concomitant]
  27. CO-AMILOFRUSE [Concomitant]

REACTIONS (1)
  - ATRIAL FIBRILLATION [None]
